FAERS Safety Report 15602820 (Version 1)
Quarter: 2018Q4

REPORT INFORMATION
  Report Type: Spontaneous
  Country: US (occurrence: US)
  Receive Date: 20181109
  Receipt Date: 20181109
  Transmission Date: 20190205
  Serious: Yes (Other)
  Sender: FDA-Public Use
  Company Number: US-PFIZER INC-2018456986

PATIENT
  Age: 74 Year
  Sex: Female

DRUGS (1)
  1. CRIZOTINIB [Suspect]
     Active Substance: CRIZOTINIB
     Indication: LUNG ADENOCARCINOMA STAGE II
     Dosage: 250 MG, 2X/DAY
     Route: 048

REACTIONS (8)
  - Visual impairment [Unknown]
  - Blood creatinine increased [Unknown]
  - Hyponatraemia [Unknown]
  - Dysgeusia [Unknown]
  - Hypokalaemia [Unknown]
  - Fatigue [Unknown]
  - Decreased appetite [Unknown]
  - Transaminases increased [Unknown]
